FAERS Safety Report 25198926 (Version 1)
Quarter: 2025Q2

REPORT INFORMATION
  Report Type: Spontaneous
  Country: US (occurrence: US)
  Receive Date: 20250415
  Receipt Date: 20250415
  Transmission Date: 20250717
  Serious: Yes (Disabling)
  Sender: SANOFI AVENTIS
  Company Number: US-SANOFI-02484024

PATIENT
  Age: 55 Year
  Sex: Female

DRUGS (1)
  1. TOUJEO [Suspect]
     Active Substance: INSULIN GLARGINE
     Indication: Product used for unknown indication
     Route: 065

REACTIONS (1)
  - Movement disorder [Not Recovered/Not Resolved]
